FAERS Safety Report 5687530-X (Version None)
Quarter: 2008Q1

REPORT INFORMATION
  Report Type: 
  Country: None (occurrence: None)
  Receive Date: 20080328
  Receipt Date: 20080318
  Transmission Date: 20080703
  Serious: No
  Sender: FDA-Public Use
  Company Number: US-BAYER-200817490NA

PATIENT
  Age: 50 Year
  Sex: Female

DRUGS (3)
  1. CLIMARA [Suspect]
     Indication: HYSTERECTOMY
     Route: 062
  2. CLIMARA [Suspect]
     Route: 062
  3. CLIMARA [Suspect]
     Route: 062
     Dates: end: 20080316

REACTIONS (7)
  - BURNING SENSATION [None]
  - FEELING HOT [None]
  - FLUSHING [None]
  - HOT FLUSH [None]
  - PAIN IN EXTREMITY [None]
  - VEIN DISORDER [None]
  - VEIN PAIN [None]
